FAERS Safety Report 13120673 (Version 7)
Quarter: 2018Q3

REPORT INFORMATION
  Report Type: Spontaneous
  Country: CA (occurrence: CA)
  Receive Date: 20170117
  Receipt Date: 20180911
  Transmission Date: 20181010
  Serious: Yes (Other)
  Sender: FDA-Public Use
  Company Number: CA-ORION CORPORATION ORION PHARMA-TREX2017-0181

PATIENT
  Age: 76 Year
  Sex: Female

DRUGS (31)
  1. ENBREL [Suspect]
     Active Substance: ETANERCEPT
     Indication: RHEUMATOID ARTHRITIS
     Route: 058
  2. GOLD [Suspect]
     Active Substance: GOLD
     Indication: RHEUMATOID ARTHRITIS
     Route: 065
  3. HUMIRA [Suspect]
     Active Substance: ADALIMUMAB
     Route: 058
  4. REMICADE [Suspect]
     Active Substance: INFLIXIMAB
     Indication: RHEUMATOID ARTHRITIS
     Route: 042
     Dates: start: 2015
  5. ARAVA [Concomitant]
     Active Substance: LEFLUNOMIDE
     Route: 065
  6. DILAUDID [Concomitant]
     Active Substance: HYDROMORPHONE HYDROCHLORIDE
     Route: 065
  7. SYNTHROID [Concomitant]
     Active Substance: LEVOTHYROXINE SODIUM
     Route: 065
  8. PLANTAGO OVATA [Concomitant]
     Active Substance: HERBALS\PLANTAGO OVATA LEAF
     Route: 065
  9. HYDROXYCHLOROQUINE [Suspect]
     Active Substance: HYDROXYCHLOROQUINE
     Indication: RHEUMATOID ARTHRITIS
     Route: 065
  10. LASIX [Concomitant]
     Active Substance: FUROSEMIDE
     Route: 065
  11. DESOXIMETASONE. [Concomitant]
     Active Substance: DESOXIMETASONE
     Route: 065
  12. METHOTREXATE (TRADE NAME UNKNOWN) [Suspect]
     Active Substance: METHOTREXATE
     Indication: RHEUMATOID ARTHRITIS
     Dosage: CYCLIC (4 TIMES EVERY 1 WEEK)
     Route: 065
  13. ACTEMRA [Suspect]
     Active Substance: TOCILIZUMAB
     Indication: RHEUMATOID ARTHRITIS
     Route: 041
     Dates: end: 20150203
  14. HUMIRA [Suspect]
     Active Substance: ADALIMUMAB
     Indication: RHEUMATOID ARTHRITIS
     Route: 058
  15. ENABLEX [Concomitant]
     Active Substance: DARIFENACIN HYDROBROMIDE
     Route: 065
  16. VAGIFEM [Concomitant]
     Active Substance: ESTRADIOL
     Route: 065
  17. APO?HYDROXYQUINE [Suspect]
     Active Substance: HYDROXYCHLOROQUINE SULFATE
     Indication: RHEUMATOID ARTHRITIS
     Route: 065
  18. CORTISONE [Concomitant]
     Active Substance: CORTISONE\HYDROCORTISONE
     Route: 065
  19. DIPHENHYDRAMINE. [Concomitant]
     Active Substance: DIPHENHYDRAMINE
     Route: 065
  20. ACTEMRA [Suspect]
     Active Substance: TOCILIZUMAB
     Route: 065
  21. BENADRYL [Concomitant]
     Active Substance: DIPHENHYDRAMINE HYDROCHLORIDE
     Route: 065
  22. LOPERAMIDE [Concomitant]
     Active Substance: LOPERAMIDE
     Route: 065
  23. PANTOLOC [Concomitant]
     Active Substance: PANTOPRAZOLE SODIUM
     Route: 065
  24. DARIFENACIN. [Concomitant]
     Active Substance: DARIFENACIN
     Route: 065
  25. PANTOPRAZOLE SODIUM. [Concomitant]
     Active Substance: PANTOPRAZOLE SODIUM
     Route: 065
  26. METHOTREXATE (TRADE NAME UNKNOWN) [Suspect]
     Active Substance: METHOTREXATE
     Route: 065
  27. PLAQUENIL [Suspect]
     Active Substance: HYDROXYCHLOROQUINE SULFATE
     Indication: RHEUMATOID ARTHRITIS
     Route: 065
  28. ATIVAN [Concomitant]
     Active Substance: LORAZEPAM
     Route: 065
  29. LAXISOFT [Concomitant]
     Route: 065
  30. NORFLEX [Concomitant]
     Active Substance: ORPHENADRINE CITRATE
     Route: 065
  31. OMNARIS [Concomitant]
     Active Substance: CICLESONIDE
     Route: 065

REACTIONS (7)
  - Oral pain [Not Recovered/Not Resolved]
  - Drug ineffective [Unknown]
  - Product use issue [Not Recovered/Not Resolved]
  - Peripheral swelling [Unknown]
  - Pneumonia viral [Unknown]
  - Drug hypersensitivity [Recovered/Resolved]
  - Herpes zoster [Unknown]
